FAERS Safety Report 10244638 (Version 1)
Quarter: 2014Q2

REPORT INFORMATION
  Report Type: Spontaneous
  Country: US (occurrence: None)
  Receive Date: 20140617
  Receipt Date: 20140617
  Transmission Date: 20141212
  Serious: No
  Sender: FDA-Public Use
  Company Number: 2014CT000021

PATIENT
  Sex: Female

DRUGS (1)
  1. KORLYM [Suspect]
     Indication: CUSHING^S SYNDROME

REACTIONS (4)
  - Fatigue [None]
  - Nausea [None]
  - Vomiting [None]
  - Hypercalcaemia [None]
